FAERS Safety Report 19059368 (Version 4)
Quarter: 2021Q2

REPORT INFORMATION
  Report Type: Report from Study
  Country: NL (occurrence: NL)
  Receive Date: 20210325
  Receipt Date: 20210423
  Transmission Date: 20210717
  Serious: Yes (Death, Hospitalization)
  Sender: FDA-Public Use
  Company Number: NL-IMMUNOMEDICS, INC.-2020IMMU000705

PATIENT
  Age: 53 Year
  Sex: Female
  Weight: 103.2 kg

DRUGS (13)
  1. EDOXABAN [Concomitant]
     Active Substance: EDOXABAN TOSYLATE
     Indication: THROMBOSIS
     Dosage: 60 MG TABLET, QD
     Route: 048
     Dates: start: 20201017
  2. SACITUZUMAB GOVITECAN. [Suspect]
     Active Substance: SACITUZUMAB GOVITECAN
     Dosage: 10 MG/KG (1024 MG) DAYS 1 AND 8 OF 21?DAYS CYCLE
     Route: 042
     Dates: start: 20201201, end: 20201201
  3. METOCLOPRAMIDE. [Concomitant]
     Active Substance: METOCLOPRAMIDE
     Indication: NAUSEA
     Dosage: 10 MG, TID PRN
     Route: 048
     Dates: start: 20190820
  4. SACITUZUMAB GOVITECAN. [Suspect]
     Active Substance: SACITUZUMAB GOVITECAN
     Indication: BREAST CANCER METASTATIC
     Dosage: 7.5 MG/KG (818 MG) DAYS 1 AND 8 OF 21?DAYS CYCLE
     Route: 042
     Dates: start: 20201027, end: 20201027
  5. PANTOPRAZOLE [Concomitant]
     Active Substance: PANTOPRAZOLE
     Indication: PROPHYLAXIS
     Dosage: 20 MG GASTRO?RESISTANT TABLET, BID
     Route: 048
     Dates: start: 20201027
  6. SACITUZUMAB GOVITECAN. [Suspect]
     Active Substance: SACITUZUMAB GOVITECAN
     Dosage: 7.5 MG/KG (818 MG) DAYS 1 AND 8 OF 21?DAYS CYCLE
     Route: 042
     Dates: start: 20201103, end: 20201103
  7. FUROSEMIDE. [Concomitant]
     Active Substance: FUROSEMIDE
     Indication: OEDEMA PERIPHERAL
     Dosage: 40 MG TABLET, 20 MILLIGRAMS QD
     Route: 048
     Dates: start: 20190820, end: 20201027
  8. DEXAMETHASONE. [Concomitant]
     Active Substance: DEXAMETHASONE
     Indication: HEPATIC PAIN
     Dosage: 0.5 MG TABLET, BID
     Route: 048
     Dates: start: 20201027
  9. THYRAX DUO [Concomitant]
     Active Substance: LEVOTHYROXINE SODIUM
     Indication: HYPOTHYROIDISM
     Dosage: 0.025 MG, 2 TABLETS, QD
     Route: 048
     Dates: start: 20191104
  10. CLOTRIMAZOLE. [Concomitant]
     Active Substance: CLOTRIMAZOLE
     Indication: WOUND
     Dosage: CREAM 10 MG/G, APPLY 1 DOSE BID ON LEFT FOOT
     Route: 061
     Dates: start: 20201222
  11. DEXAMETHASONE. [Concomitant]
     Active Substance: DEXAMETHASONE
     Indication: PROPHYLAXIS
  12. SACITUZUMAB GOVITECAN. [Suspect]
     Active Substance: SACITUZUMAB GOVITECAN
     Dosage: 10 MG/KG (1024 MG) DAYS 1 AND 8 OF 21?DAYS CYCLE
     Route: 042
     Dates: start: 20201124, end: 20201124
  13. MACROGOL [Concomitant]
     Active Substance: POLYETHYLENE GLYCOLS
     Indication: CONSTIPATION PROPHYLAXIS
     Dosage: SALTS POWDER FOR DRINKING (MOVIC/MOLAX/LAXT/GEN) 1 DOSE, BID PRN
     Route: 048
     Dates: start: 20190820

REACTIONS (5)
  - Stomatitis [Not Recovered/Not Resolved]
  - Febrile neutropenia [Recovered/Resolved]
  - Urinary tract infection [Recovered/Resolved]
  - Diarrhoea [Recovered/Resolved]
  - Wound infection [Not Recovered/Not Resolved]

NARRATIVE: CASE EVENT DATE: 20201206
